FAERS Safety Report 5739480-8 (Version None)
Quarter: 2008Q2

REPORT INFORMATION
  Report Type: 
  Country: None (occurrence: None)
  Receive Date: 20080515
  Receipt Date: 20080513
  Transmission Date: 20081010
  Serious: Yes (Hospitalization)
  Sender: FDA-Public Use
  Company Number: PHRM2007FR02056

PATIENT
  Age: 57 Year
  Sex: Male

DRUGS (9)
  1. TEGRETOL [Suspect]
     Dosage: 600 MG, QD
     Route: 048
     Dates: start: 20070611, end: 20070618
  2. COVERSYL /FRA/ [Suspect]
     Dosage: 4 MG, QD
     Route: 048
     Dates: start: 20070613, end: 20070618
  3. NORSET [Concomitant]
     Dosage: 15 MG, BID
     Route: 048
     Dates: start: 20070601
  4. OXAZEPAM [Concomitant]
     Dosage: 10 MG, QID
     Route: 048
     Dates: end: 20070627
  5. MEDIATENSYL [Concomitant]
     Dosage: 2 DF/DAY
     Route: 048
     Dates: end: 20070627
  6. CELECTOL [Concomitant]
     Dosage: 200 MG, QD
     Route: 048
  7. ODRIK [Concomitant]
     Dosage: 2 MG, QD
     Route: 048
     Dates: end: 20070615
  8. ASPIRIN [Concomitant]
     Dosage: 75 MG, QD
     Route: 048
  9. CRESTOR [Concomitant]
     Dates: end: 20070627

REACTIONS (23)
  - ABDOMINAL PAIN [None]
  - DERMATITIS BULLOUS [None]
  - DRY SKIN [None]
  - DYSPEPSIA [None]
  - DYSPHAGIA [None]
  - ENTEROCOLITIS [None]
  - ERYTHEMA MULTIFORME [None]
  - EXCORIATION [None]
  - EYELID OEDEMA [None]
  - FEEDING DISORDER [None]
  - ILEITIS [None]
  - MUCOSAL ULCERATION [None]
  - PRURIGO [None]
  - PRURITUS [None]
  - PURPURA [None]
  - PYREXIA [None]
  - RASH ERYTHEMATOUS [None]
  - RASH MACULO-PAPULAR [None]
  - SCAN ABDOMEN ABNORMAL [None]
  - SMALL BOWEL ANGIOEDEMA [None]
  - STARVATION [None]
  - TESTICULAR PAIN [None]
  - TOXIC SKIN ERUPTION [None]
